FAERS Safety Report 16372318 (Version 1)
Quarter: 2019Q2

REPORT INFORMATION
  Report Type: Spontaneous
  Country: US (occurrence: US)
  Receive Date: 20190530
  Receipt Date: 20190530
  Transmission Date: 20190711
  Serious: No
  Sender: FDA-Public Use
  Company Number: US-PERRIGO-18US014965

PATIENT
  Age: 55 Year
  Sex: Female
  Weight: 134.4 kg

DRUGS (3)
  1. METRONIDAZOLE                      /00012502/ [Concomitant]
     Active Substance: METRONIDAZOLE BENZOATE
     Indication: ROSACEA
     Dosage: UNK
     Route: 065
     Dates: start: 2018
  2. TRIAMCINOLONE ACETONIDE. [Suspect]
     Active Substance: TRIAMCINOLONE ACETONIDE
     Indication: ROSACEA
     Dosage: 1 APPLICATION, BID
     Route: 061
     Dates: start: 2015, end: 201812
  3. TRIAMCINOLONE ACETONIDE. [Suspect]
     Active Substance: TRIAMCINOLONE ACETONIDE
     Dosage: 1 APPLICATION, BID
     Route: 061
     Dates: start: 201812, end: 20181226

REACTIONS (1)
  - Drug ineffective [Unknown]

NARRATIVE: CASE EVENT DATE: 201812
